FAERS Safety Report 5285493-2 (Version None)
Quarter: 2007Q1

REPORT INFORMATION
  Report Type: 
  Country: None (occurrence: None)
  Receive Date: 20070328
  Receipt Date: 20070322
  Transmission Date: 20070707
  Serious: No
  Sender: FDA-Public Use
  Company Number: 20017S1000075

PATIENT
  Age: 53 Year
  Sex: Male

DRUGS (4)
  1. SORIATANE [Suspect]
     Indication: PUSTULAR PSORIASIS
     Dosage: 25 MG;QD;PO
     Route: 048
     Dates: start: 20070103, end: 20070212
  2. DOVONEX [Concomitant]
  3. ULTRAVATE [Concomitant]
  4. TAZORAC [Concomitant]

REACTIONS (1)
  - OSTEOMYELITIS [None]
